FAERS Safety Report 8493009 (Version 2)
Quarter: 2012Q4

REPORT INFORMATION
  Report Type: 
  Country: US (occurrence: US)
  Receive Date: 20120404
  Receipt Date: 20121221
  Transmission Date: 20130627
  Serious: Yes (Other)
  Sender: FDA-Public Use
  Company Number: US-PFIZER INC-2012082888

PATIENT
  Age: 76 Year
  Sex: Male

DRUGS (18)
  1. TIKOSYN [Suspect]
     Indication: ATRIAL FIBRILLATION
     Dosage: 375 ug, 2x/day
     Route: 048
  2. TIKOSYN [Suspect]
     Indication: PAROXYSMAL ATRIAL FIBRILLATION
     Dosage: 250 ug, 2x/day, (1 po bid)
     Route: 048
  3. TIKOSYN [Suspect]
     Dosage: 125 ug, 2x/day, (1Po bid)
     Route: 048
  4. LEVEMIR [Concomitant]
     Dosage: 34U am+25 unit daily pm
  5. MAVIK [Concomitant]
     Dosage: 1 mg, daily
  6. ASPIRIN [Concomitant]
     Dosage: 81 mg, UNK
  7. SPIRONOLACTONE [Concomitant]
     Dosage: 25 mg, UNK
  8. ATENOLOL [Concomitant]
     Dosage: 50 mg, UNK
  9. GLUCOPHAGE [Concomitant]
     Dosage: 1 g, 2x/day
  10. ATORVASTATIN [Concomitant]
     Dosage: 40 mg, UNK
  11. CLONIDINE [Concomitant]
     Dosage: 0.1 mg, UNK
  12. AMARYL [Concomitant]
     Dosage: 4 mg, UNK
  13. COUMADINE [Concomitant]
     Dosage: UNK
  14. LIPITOR [Concomitant]
     Dosage: UNK
  15. LASIX [Concomitant]
     Dosage: UNK
  16. INSULIN [Concomitant]
     Dosage: UNK
  17. METFORMIN [Concomitant]
     Dosage: UNK
  18. TRANDOLAPRIL [Concomitant]
     Dosage: UNK

REACTIONS (4)
  - Aortic valve incompetence [Unknown]
  - Pericardial effusion [Unknown]
  - Palpitations [Unknown]
  - Dyspnoea exertional [Unknown]
